FAERS Safety Report 4560391-8 (Version None)
Quarter: 2005Q1

REPORT INFORMATION
  Report Type: 
  Country: None (occurrence: None)
  Receive Date: 20050125
  Receipt Date: 20050117
  Transmission Date: 20050727
  Serious: Yes (Other)
  Sender: FDA-Public Use
  Company Number: US-ROCHE-392883

PATIENT
  Age: 38 Year
  Sex: Male
  Weight: 74.8 kg

DRUGS (15)
  1. CELLCEPT [Suspect]
     Dosage: DOSE GRADUALLY INCREASE FROM 250 MG TO 1000 MG BID.
     Route: 048
     Dates: start: 20000615
  2. CELLCEPT [Suspect]
     Route: 048
  3. METHOTREXATE [Concomitant]
     Indication: LUPUS-LIKE SYNDROME
     Route: 048
  4. PREDNISONE [Concomitant]
     Route: 048
  5. ALPRAZOLAM [Concomitant]
     Route: 048
  6. LIPITOR [Concomitant]
     Route: 048
  7. LEVSIN PB [Concomitant]
     Route: 048
  8. ASPIRIN [Concomitant]
     Route: 048
  9. ATENOLOL [Concomitant]
     Route: 048
  10. ZETIA [Concomitant]
     Route: 048
  11. OXYCODONE HCL [Concomitant]
     Route: 048
  12. ALBUTEROL [Concomitant]
     Route: 048
  13. AMITRIPTYLINE [Concomitant]
     Route: 048
  14. NIASPAN [Concomitant]
     Route: 048
  15. BENADRYL [Concomitant]
     Route: 048

REACTIONS (7)
  - BLOOD CHOLESTEROL INCREASED [None]
  - BLOOD TRIGLYCERIDES INCREASED [None]
  - BONE PAIN [None]
  - DIARRHOEA [None]
  - LIVER FUNCTION TEST ABNORMAL [None]
  - NAUSEA [None]
  - VOMITING [None]
